FAERS Safety Report 8226802-1 (Version None)
Quarter: 2012Q1

REPORT INFORMATION
  Report Type: 
  Country: None (occurrence: None)
  Receive Date: 20120322
  Receipt Date: 20120313
  Transmission Date: 20120608
  Serious: Yes (Hospitalization)
  Sender: FDA-Public Use
  Company Number: US-BAYER-2011-075699

PATIENT
  Age: 19 Year
  Sex: Female
  Weight: 81 kg

DRUGS (12)
  1. YAZ [Suspect]
     Indication: ACNE
  2. ASCORBIC ACID [Concomitant]
     Dosage: UNK UNK, PRN
  3. PEPCID [Concomitant]
  4. YAZ [Suspect]
     Indication: CONTRACEPTION
     Dosage: UNK
     Dates: start: 20070801, end: 20090801
  5. TYLENOL [Concomitant]
     Dosage: UNK UNK, PRN
  6. AMOXICILLIN [Concomitant]
     Dosage: UNK
     Dates: start: 20080101
  7. ALBUTEROL [Concomitant]
     Dosage: UNK UNK, PRN
  8. METHYLPREDNISOLONE ACETATE [Concomitant]
     Dosage: 4 MG
     Dates: start: 20080223
  9. EXCEDRIN (MIGRAINE) [Concomitant]
     Dosage: UNK UNK, PRN
  10. NSAID'S [Concomitant]
     Dosage: UNK UNK, PRN
  11. BISMUTH SUBSALICYLATE [Concomitant]
  12. ZANTAC [Concomitant]

REACTIONS (3)
  - CHOLECYSTITIS ACUTE [None]
  - CHOLECYSTECTOMY [None]
  - PAIN [None]
